FAERS Safety Report 26152177 (Version 1)
Quarter: 2025Q4

REPORT INFORMATION
  Report Type: Spontaneous
  Country: JP (occurrence: JP)
  Receive Date: 20251214
  Receipt Date: 20251214
  Transmission Date: 20260119
  Serious: Yes (Other)
  Sender: TAKEDA
  Company Number: JP-TAKEDA-2025TUS113219

PATIENT
  Age: 4 Decade
  Sex: Female

DRUGS (1)
  1. LIALDA [Suspect]
     Active Substance: MESALAMINE
     Indication: Colitis ulcerative
     Dosage: 4800 MILLIGRAM, QD

REACTIONS (4)
  - Gastrointestinal oedema [Unknown]
  - Colitis ulcerative [Unknown]
  - Pancreatic enlargement [Unknown]
  - Hypersensitivity [Unknown]
